FAERS Safety Report 6237056-X (Version None)
Quarter: 2009Q2

REPORT INFORMATION
  Report Type: 
  Country: None (occurrence: None)
  Receive Date: 20090619
  Receipt Date: 20090512
  Transmission Date: 20091009
  Serious: No
  Sender: FDA-Public Use
  Company Number: US-ASTRAZENECA-2009UW12184

PATIENT
  Age: 65 Year
  Sex: Female
  Weight: 70.3 kg

DRUGS (1)
  1. SYMBICORT [Suspect]
     Indication: ASTHMA
     Route: 055

REACTIONS (5)
  - DRUG ADMINISTRATION ERROR [None]
  - GLOSSODYNIA [None]
  - LIP SWELLING [None]
  - SWOLLEN TONGUE [None]
  - THROAT IRRITATION [None]
